FAERS Safety Report 15531697 (Version 1)
Quarter: 2018Q4

REPORT INFORMATION
  Report Type: Spontaneous
  Country: US (occurrence: US)
  Receive Date: 20181019
  Receipt Date: 20181019
  Transmission Date: 20190205
  Serious: No
  Sender: FDA-Public Use
  Company Number: US-PFIZER INC-2018416602

PATIENT
  Age: 70 Year
  Sex: Female

DRUGS (1)
  1. MEDROL [Suspect]
     Active Substance: METHYLPREDNISOLONE
     Dosage: UNK

REACTIONS (4)
  - Drug hypersensitivity [Unknown]
  - Night sweats [Unknown]
  - Headache [Unknown]
  - Arthralgia [Unknown]
